FAERS Safety Report 6594519-5 (Version None)
Quarter: 2010Q1

REPORT INFORMATION
  Report Type: 
  Country: None (occurrence: None)
  Receive Date: 20100222
  Receipt Date: 20100209
  Transmission Date: 20100710
  Serious: Yes (Hospitalization)
  Sender: FDA-Public Use
  Company Number: NL-BAXTER-2010BH002847

PATIENT
  Age: 29 Year
  Sex: Female

DRUGS (6)
  1. GAMMAGARD S/D [Suspect]
     Indication: DRUG USE FOR UNKNOWN INDICATION
     Route: 042
     Dates: start: 20100125, end: 20100125
  2. GAMMAGARD S/D [Suspect]
     Route: 042
     Dates: start: 20091116, end: 20091130
  3. GAMMAGARD S/D [Suspect]
     Route: 042
     Dates: start: 20091214, end: 20091228
  4. GAMMAGARD S/D [Suspect]
     Route: 042
     Dates: start: 20100111, end: 20100111
  5. SODIUM CHLORIDE 0.9% IN PLASTIC CONTAINER [Suspect]
     Indication: DRUG USE FOR UNKNOWN INDICATION
     Route: 065
     Dates: start: 20100125, end: 20100125
  6. METFORMIN [Concomitant]
     Indication: DIABETES MELLITUS

REACTIONS (1)
  - BLOOD GLUCOSE INCREASED [None]
